FAERS Safety Report 21313235 (Version 4)
Quarter: 2022Q4

REPORT INFORMATION
  Report Type: Spontaneous
  Country: CH (occurrence: CH)
  Receive Date: 20220909
  Receipt Date: 20221104
  Transmission Date: 20230113
  Serious: Yes (Other)
  Sender: FDA-Public Use
  Company Number: CH-BAYER-2022P012807

PATIENT
  Age: 80 Year
  Sex: Male

DRUGS (2)
  1. EYLEA [Suspect]
     Active Substance: AFLIBERCEPT
     Indication: Product used for unknown indication
     Dosage: UNK, RIGHT EYE, SOLUTION FOR INJECTION IN PRE-FILLED SYRINGE, STRENGTH: 40 MG/ML
     Route: 031
     Dates: start: 201810
  2. EYLEA [Suspect]
     Active Substance: AFLIBERCEPT
     Dosage: DOSAGE,FREQUENCY,UNK, PT RECVED 15 DOSES OF EYLEA, SOL FOR INJECT IN PRE-FILLED SYRINGE, 40 MG/ML
     Route: 031
     Dates: start: 20200203, end: 20220702

REACTIONS (3)
  - Visual field defect [Not Recovered/Not Resolved]
  - Intraocular pressure increased [Recovered/Resolved]
  - Device use issue [Unknown]

NARRATIVE: CASE EVENT DATE: 20191011
